FAERS Safety Report 20700390 (Version 1)
Quarter: 2022Q2

REPORT INFORMATION
  Report Type: Spontaneous
  Country: US (occurrence: None)
  Receive Date: 20220411
  Receipt Date: 20220411
  Transmission Date: 20220721
  Serious: Yes (Other)
  Sender: FDA-Public Use
  Company Number: None

PATIENT
  Age: 62 Year
  Sex: Female
  Weight: 88.45 kg

DRUGS (1)
  1. PREGABALIN [Suspect]
     Active Substance: PREGABALIN
     Dosage: FREQUENCY : 3 TIMES A DAY?
     Dates: start: 20200723, end: 20200724

REACTIONS (8)
  - Cognitive disorder [None]
  - Anxiety [None]
  - Fatigue [None]
  - Product substitution issue [None]
  - Condition aggravated [None]
  - Agitation [None]
  - Hypersensitivity [None]
  - Loss of personal independence in daily activities [None]

NARRATIVE: CASE EVENT DATE: 20200723
